FAERS Safety Report 6558625-3 (Version None)
Quarter: 2010Q1

REPORT INFORMATION
  Report Type: 
  Country: None (occurrence: None)
  Receive Date: 20100129
  Receipt Date: 20100122
  Transmission Date: 20100710
  Serious: Yes (Other)
  Sender: FDA-Public Use
  Company Number: US-JNJFOC-20100110176

PATIENT
  Sex: Male
  Weight: 86.18 kg

DRUGS (4)
  1. LEVAQUIN [Suspect]
     Indication: PROSTATITIS
     Dosage: FOR 10 DAYS
     Route: 048
  2. TYLENOL-500 [Concomitant]
     Indication: ARTHRITIS
     Route: 048
  3. VITAMIN [Concomitant]
     Indication: VITAMIN SUPPLEMENTATION
     Route: 047
  4. VITAMIN [Concomitant]
     Route: 048

REACTIONS (3)
  - ABASIA [None]
  - ARTHRALGIA [None]
  - TENDONITIS [None]
